FAERS Safety Report 25580437 (Version 1)
Quarter: 2025Q3

REPORT INFORMATION
  Report Type: Spontaneous
  Country: US (occurrence: US)
  Receive Date: 20250718
  Receipt Date: 20250718
  Transmission Date: 20251020
  Serious: No
  Sender: NOVO NORDISK
  Company Number: US-NOVOPROD-1402963

PATIENT
  Age: 69 Year
  Sex: Male

DRUGS (2)
  1. WEGOVY [Suspect]
     Active Substance: SEMAGLUTIDE
     Indication: Cardiovascular disorder
  2. WEGOVY [Suspect]
     Active Substance: SEMAGLUTIDE
     Indication: Body mass index increased
     Dosage: 0.25 MG, QW
     Route: 058
     Dates: start: 202501

REACTIONS (2)
  - Decreased appetite [Unknown]
  - Injection site indentation [Unknown]

NARRATIVE: CASE EVENT DATE: 20250101
